FAERS Safety Report 20467804 (Version 2)
Quarter: 2022Q1

REPORT INFORMATION
  Report Type: Spontaneous
  Country: US (occurrence: US)
  Receive Date: 20220214
  Receipt Date: 20220216
  Transmission Date: 20220423
  Serious: Yes (Other)
  Sender: FDA-Public Use
  Company Number: US-JNJFOC-20210949505

PATIENT
  Age: 54 Year
  Sex: Female

DRUGS (17)
  1. ELMIRON [Suspect]
     Active Substance: PENTOSAN POLYSULFATE SODIUM
     Indication: Cystitis interstitial
     Dosage: THERAPY START DATE: //2014
     Route: 048
     Dates: end: 2020
  2. ELMIRON [Suspect]
     Active Substance: PENTOSAN POLYSULFATE SODIUM
     Indication: Micturition urgency
     Dosage: THERAPY START DATE: /SEP/2014. TWO TABLETS IN THE AM AND TWO IN THE PM FOR A TOTAL OF 400 MG PER DAY
     Route: 048
     Dates: end: 201708
  3. ELMIRON [Suspect]
     Active Substance: PENTOSAN POLYSULFATE SODIUM
     Dosage: THERAPY START DATE: 24/AUG/2017
     Route: 048
     Dates: end: 202001
  4. AMLODIPINE [Concomitant]
     Active Substance: AMLODIPINE BESYLATE
     Indication: Hypertension
     Dates: start: 201910
  5. SYNTHROID [Concomitant]
     Active Substance: LEVOTHYROXINE SODIUM
     Indication: Hypothyroidism
     Dates: start: 200907
  6. CRESTOR [Concomitant]
     Active Substance: ROSUVASTATIN CALCIUM
     Indication: Hypercholesterolaemia
     Dosage: 40 MG TO 10 MG THEN TO 5 MG
     Dates: start: 201501
  7. NEXIUM [Concomitant]
     Active Substance: ESOMEPRAZOLE MAGNESIUM
     Indication: Gastrooesophageal reflux disease
     Dates: start: 2009
  8. PATADAY [Concomitant]
     Active Substance: OLOPATADINE HYDROCHLORIDE
     Indication: Multiple allergies
     Dates: start: 200910
  9. PATADAY [Concomitant]
     Active Substance: OLOPATADINE HYDROCHLORIDE
     Indication: Conjunctivitis allergic
  10. DYMISTA [Concomitant]
     Active Substance: AZELASTINE HYDROCHLORIDE\FLUTICASONE PROPIONATE
     Indication: Conjunctivitis allergic
     Dates: start: 201506, end: 2020
  11. DYMISTA [Concomitant]
     Active Substance: AZELASTINE HYDROCHLORIDE\FLUTICASONE PROPIONATE
     Indication: Multiple allergies
  12. CLARINEX [LORATADINE;PSEUDOEPHEDRINE SULFATE] [Concomitant]
     Indication: Multiple allergies
     Dates: start: 2015
  13. COENZYME Q10 [Concomitant]
     Active Substance: DIETARY SUPPLEMENT\UBIDECARENONE
     Indication: Vitamin supplementation
     Dates: start: 2012
  14. REPATHA [Concomitant]
     Active Substance: EVOLOCUMAB
     Dates: start: 201812
  15. VITAMIN D3 [Concomitant]
     Active Substance: CHOLECALCIFEROL
     Indication: Vitamin supplementation
     Dates: start: 201907
  16. SERTRALINE [Concomitant]
     Active Substance: SERTRALINE HYDROCHLORIDE
     Dates: start: 20191010
  17. VITAMIN B12 [Concomitant]
     Active Substance: CYANOCOBALAMIN
     Indication: Vitamin supplementation

REACTIONS (5)
  - Neovascular age-related macular degeneration [Not Recovered/Not Resolved]
  - Cataract [Not Recovered/Not Resolved]
  - Retinopathy [Not Recovered/Not Resolved]
  - Off label use [Unknown]
  - Incorrect dose administered [Unknown]

NARRATIVE: CASE EVENT DATE: 19991101
